FAERS Safety Report 17342502 (Version 1)
Quarter: 2020Q1

REPORT INFORMATION
  Report Type: Spontaneous
  Country: US (occurrence: US)
  Receive Date: 20200129
  Receipt Date: 20200129
  Transmission Date: 20200409
  Serious: Yes (Life-Threatening, Other)
  Sender: FDA-Public Use
  Company Number: NVSC2020US017413

PATIENT
  Sex: Female

DRUGS (1)
  1. COSENTYX [Suspect]
     Active Substance: SECUKINUMAB
     Indication: PRODUCT USED FOR UNKNOWN INDICATION
     Dosage: UNK
     Route: 065
     Dates: end: 201812

REACTIONS (8)
  - Fluid retention [Unknown]
  - Swelling [Unknown]
  - Staphylococcal bacteraemia [Unknown]
  - Psoriasis [Unknown]
  - Alopecia [Unknown]
  - Apparent death [Unknown]
  - Blindness [Unknown]
  - Erythema [Unknown]
